FAERS Safety Report 21591743 (Version 9)
Quarter: 2023Q1

REPORT INFORMATION
  Report Type: Report from Study
  Country: GB (occurrence: GB)
  Receive Date: 20221114
  Receipt Date: 20230309
  Transmission Date: 20230417
  Serious: Yes (Hospitalization, Other)
  Sender: FDA-Public Use
  Company Number: GB-ROCHE-2552993

PATIENT
  Age: 65 Year
  Sex: Female
  Weight: 80 kg

DRUGS (192)
  1. BENDAMUSTINE [Suspect]
     Active Substance: BENDAMUSTINE
     Indication: Follicular lymphoma
     Dosage: 180 MILLIGRAM, QD (CUMULATIVE DOSE TO FIRST REACTION: 69840.0 MG), 8/JUN/2020 AND 18/MAY/2020,25/JUN
     Route: 065
     Dates: start: 20210308
  2. BENDAMUSTINE [Suspect]
     Active Substance: BENDAMUSTINE
     Dosage: 180 MILLIGRAM,QD,8/JUN/2020 AND 18/MAY/2020,25/JUN/2020. THE PATIENT RECEIVED MOST RECENT DOSE OF AT
     Route: 065
     Dates: start: 20210706
  3. BENDAMUSTINE [Suspect]
     Active Substance: BENDAMUSTINE
     Dosage: 180 MG, EVERY DAY, DOSE FORM 15
     Route: 065
     Dates: start: 20210308
  4. BENDAMUSTINE [Suspect]
     Active Substance: BENDAMUSTINE
     Dosage: UNK
     Route: 065
  5. BENDAMUSTINE [Suspect]
     Active Substance: BENDAMUSTINE
     Dosage: UNK
     Route: 042
  6. BENDAMUSTINE [Suspect]
     Active Substance: BENDAMUSTINE
     Dosage: 90 MG/M2, QD (SUBSEQUENT DOSE (90 MG/M2) BENDAMUSTINE ON 06/APR/2021 TO 07/APR/2021, 04/MAY/2021 TO
     Route: 042
     Dates: start: 20210308
  7. BENDAMUSTINE [Suspect]
     Active Substance: BENDAMUSTINE
     Dosage: 180 MG, EVERY DAY, DOSE FORM 15
     Route: 065
     Dates: start: 20210308
  8. ATEZOLIZUMAB [Suspect]
     Active Substance: ATEZOLIZUMAB
     Indication: Non-small cell lung cancer
     Dosage: UNK, 8/JUN/2020 AND 18/MAY/2020,25/JUN/2020. THE PATIENT RECEIVED MOST RECENT DOSE OF ATEZOLIZUMAB (
     Route: 065
     Dates: start: 20200518
  9. ATEZOLIZUMAB [Suspect]
     Active Substance: ATEZOLIZUMAB
     Indication: Transitional cell carcinoma
     Dosage: 1200 MILLIGRAM, Q3WK
     Route: 042
     Dates: start: 20200210
  10. ATEZOLIZUMAB [Suspect]
     Active Substance: ATEZOLIZUMAB
     Dosage: 3600 MILLIGRAM, QWK, SUBSEQUENTLY, DOSE ON 09/MAR/2020, 06/APR/2020
     Route: 042
     Dates: start: 20200210
  11. ATEZOLIZUMAB [Suspect]
     Active Substance: ATEZOLIZUMAB
     Dosage: UNK
     Route: 065
     Dates: start: 20200608
  12. ATEZOLIZUMAB [Suspect]
     Active Substance: ATEZOLIZUMAB
     Dosage: UNK, 8/JUN/2020 AND 18/MAY/2020,25/JUN/2020. THE PATIENT RECEIVED MOST RECENT DOSE OF ATEZOLIZUMAB (
     Route: 065
     Dates: start: 20200625
  13. ATEZOLIZUMAB [Suspect]
     Active Substance: ATEZOLIZUMAB
     Dosage: UNK (8 JUN 2020 AND 18 MAY 2020,25 JUN 2020 THE PATIENT RECEIVED MOST RECENT DOSE OF ATEZOLIZUMAB(12
     Route: 065
  14. ATEZOLIZUMAB [Suspect]
     Active Substance: ATEZOLIZUMAB
     Dosage: UNK, 8/JUN/2020 AND 18/MAY/2020,25/JUN/2020. THE PATIENT RECEIVED MOST RECENT DOSE OF ATEZOLIZUMAB (
     Route: 065
     Dates: start: 20200606
  15. ATEZOLIZUMAB [Suspect]
     Active Substance: ATEZOLIZUMAB
     Dosage: 1200 MILLIGRAM, Q3WK
     Route: 042
     Dates: start: 20220406
  16. ATEZOLIZUMAB [Suspect]
     Active Substance: ATEZOLIZUMAB
     Dosage: 1200 MILLIGRAM, Q3WK
     Route: 042
     Dates: start: 20200427, end: 20200625
  17. ATEZOLIZUMAB [Suspect]
     Active Substance: ATEZOLIZUMAB
     Dosage: 1200 MG, QW (SUBSEQUENTLY, DOSE ON 09 MAR 2020, 06 APR 2020 AND 27 APR 2020) (8 JUN 2020 AND 18 MAY
     Route: 041
     Dates: start: 20200210
  18. ATEZOLIZUMAB [Suspect]
     Active Substance: ATEZOLIZUMAB
     Dosage: 3600 MG, QW (1200 MILLIGRAM, Q3WK)
     Route: 065
     Dates: start: 20200309
  19. ATEZOLIZUMAB [Suspect]
     Active Substance: ATEZOLIZUMAB
     Dosage: 3600 MG, QW (CUMULATIVE DOSE TO FIRST REACTION: 2057.1428 MG; 3600 MILLIGRAM, QW)
     Route: 065
     Dates: start: 20200625
  20. ATEZOLIZUMAB [Suspect]
     Active Substance: ATEZOLIZUMAB
     Dosage: UNK (CUMULATIVE DOSE- 2057.142 MILLIGRAMS)
     Route: 065
     Dates: start: 20200718
  21. ATEZOLIZUMAB [Suspect]
     Active Substance: ATEZOLIZUMAB
     Dosage: 1200 MG, Q3W (CUMULATIVE DOSE: 44683.332 MG)
     Route: 065
     Dates: start: 20200427
  22. ATEZOLIZUMAB [Suspect]
     Active Substance: ATEZOLIZUMAB
     Dosage: UNK (8 JUN 2020 AND 18 MAY 2020,25 JUN 2020 THE PATIENT RECEIVED MOST RECENT DOSE OF ATEZOLIZUMAB(12
     Route: 065
     Dates: start: 20200406
  23. ATEZOLIZUMAB [Suspect]
     Active Substance: ATEZOLIZUMAB
     Dosage: 1200 MILLIGRAM,SUBSEQUENTLY, DOSE ON 09/MAR/2020, 06/APR/2020 AND 27/APR/2020, 08/JUN/2020 AND 18/MA
     Route: 040
     Dates: start: 20200210
  24. ATEZOLIZUMAB [Suspect]
     Active Substance: ATEZOLIZUMAB
     Dosage: ON 09/MAR, 06/APR, 27/APR SO ON
     Route: 042
     Dates: start: 20200210
  25. ATEZOLIZUMAB [Suspect]
     Active Substance: ATEZOLIZUMAB
     Dosage: 1200 MG, DOSAGE FORM: INJECTION, SUBSEQUENTLY, DOSE ON 09/MAR/2020, 06/APR/2020 AND 27/APR/2020, 08/
     Route: 040
     Dates: start: 20200606
  26. ATEZOLIZUMAB [Suspect]
     Active Substance: ATEZOLIZUMAB
     Dosage: 1200 MILLIGRAM, QW, 8/JUN/2020 AND 18/MAY/2020,25/JUN/2020. THE PATIENT RECEIVED MOST RECENT DOSE OF
     Route: 042
     Dates: start: 20200210
  27. ATEZOLIZUMAB [Suspect]
     Active Substance: ATEZOLIZUMAB
     Dosage: 1200 MG, 8/JUN/2020 AND 18/MAY/2020,25/JUN/2020. THE PATIENT RECEIVED MOST RECENT DOSE OF ATEZOLIZUM
     Route: 042
     Dates: start: 20200210
  28. ATEZOLIZUMAB [Suspect]
     Active Substance: ATEZOLIZUMAB
     Dosage: 200 MILLIGRAM, Q2WK, 8/JUN/2020 AND 18/MAY/2020,25/JUN/2020 THE PATIENT RECEIVED MOST RECENT DOSE OF
     Route: 042
  29. ATEZOLIZUMAB [Suspect]
     Active Substance: ATEZOLIZUMAB
     Dosage: 1200 MILLIGRAM, 8/JUN/2020 AND 18/MAY/2020,25/JUN/2020 THE PATIENT RECEIVED MOST RECENT DOSE OF ATEZ
     Route: 040
  30. ATEZOLIZUMAB [Suspect]
     Active Substance: ATEZOLIZUMAB
     Dosage: 3600 MILLIGRAM, QWK, 8/JUN/2020 AND 18/MAY/2020,25/JUN/2020 THE PATIENT RECEIVED MOST RECENT DOSE OF
     Route: 040
  31. ATEZOLIZUMAB [Suspect]
     Active Substance: ATEZOLIZUMAB
     Dosage: 1200 MILLIGRAM, Q3WK, 8/JUN/2020 AND 18/MAY/2020,25/JUN/2020 THE PATIENT RECEIVED MOST RECENT DOSE O
     Route: 042
  32. ATEZOLIZUMAB [Suspect]
     Active Substance: ATEZOLIZUMAB
     Dosage: 1200 MILLIGRAM, Q3WK, 8/JUN/2020 AND 18/MAY/2020,25/JUN/2020 THE PATIENT RECEIVED MOST RECENT DOSE O
     Route: 042
  33. BEVACIZUMAB [Suspect]
     Active Substance: BEVACIZUMAB
     Indication: Transitional cell carcinoma
     Dosage: UNK
     Route: 065
  34. BEVACIZUMAB [Suspect]
     Active Substance: BEVACIZUMAB
     Indication: Non-small cell lung cancer
     Dosage: 1100 MILLIGRAM
     Route: 040
     Dates: start: 20200210
  35. BEVACIZUMAB [Suspect]
     Active Substance: BEVACIZUMAB
     Indication: Transitional cell carcinoma
     Dosage: 1200 MILLIGRAM, BIWEEKLY
     Route: 042
     Dates: start: 20200210
  36. BEVACIZUMAB [Suspect]
     Active Substance: BEVACIZUMAB
     Dosage: 1200 MILLIGRAM, ONCE EVERY WEEK
     Route: 042
     Dates: start: 20200210
  37. BEVACIZUMAB [Suspect]
     Active Substance: BEVACIZUMAB
     Dosage: 1200 MILLIGRAM, THRICE WEEKLY
     Route: 042
     Dates: start: 20200210
  38. BEVACIZUMAB [Suspect]
     Active Substance: BEVACIZUMAB
     Dosage: 2400 MILLIGRAM, QWK
     Route: 040
     Dates: start: 20200210
  39. BEVACIZUMAB [Suspect]
     Active Substance: BEVACIZUMAB
     Dosage: 1100 MG, QW
     Route: 042
     Dates: start: 20200210
  40. BEVACIZUMAB [Suspect]
     Active Substance: BEVACIZUMAB
     Dosage: 3600 MG, QW (1200 MILLIGRAM, 3XW (CUMULATIVE DOSE TO FIRST REACTION: 266378.56 MG)
     Route: 042
     Dates: start: 20200210
  41. BEVACIZUMAB [Suspect]
     Active Substance: BEVACIZUMAB
     Dosage: 1100 MILLIGRAM, QWK, 8/JUN/2020 AND 18/MAY/2020,25/JUN/2020. THE PATIENT RECEIVED MOST RECENT DOSE O
     Route: 040
  42. BEVACIZUMAB [Suspect]
     Active Substance: BEVACIZUMAB
     Dosage: 1200 MILLIGRAM, QW, 8/JUN/2020 AND 18/MAY/2020,25/JUN/2020. THE PATIENT RECEIVED MOST RECENT DOSE OF
     Route: 040
     Dates: start: 20200210
  43. BEVACIZUMAB [Suspect]
     Active Substance: BEVACIZUMAB
     Dosage: 1200 MILLIGRAM, QW
     Route: 042
     Dates: start: 20200210
  44. BEVACIZUMAB [Suspect]
     Active Substance: BEVACIZUMAB
     Dosage: 8/JUN/2020 AND 18/MAY/2020,25/JUN/2020 THE PATIENT RECEIVED MOST RECENT DOSE OF ATEZOLIZUMAB (1200
     Route: 065
  45. CARBOPLATIN [Suspect]
     Active Substance: CARBOPLATIN
     Indication: Transitional cell carcinoma
     Dosage: UNK
     Route: 042
  46. CARBOPLATIN [Suspect]
     Active Substance: CARBOPLATIN
     Indication: Transitional cell carcinoma
     Dosage: 630 MILLIGRAM, 8/JUN/2020 AND 18/MAY/2020,25/JUN/2020. THE PATIENT RECEIVED MOST RECENT DOSE OF ATEZ
     Route: 042
     Dates: start: 20200210
  47. CARBOPLATIN [Suspect]
     Active Substance: CARBOPLATIN
     Dosage: 8/JUN/2020 AND 18/MAY/2020,25/JUN/2020 THE PATIENT RECEIVED MOST RECENT DOSE OF ATEZOLIZUMAB (1200
     Route: 065
  48. CARBOPLATIN [Suspect]
     Active Substance: CARBOPLATIN
     Dosage: 630 MILLIGRAM
     Route: 042
     Dates: start: 20200210
  49. DIHYDROCODEINE BITARTRATE [Suspect]
     Active Substance: DIHYDROCODEINE BITARTRATE
     Indication: Visual impairment
     Dosage: 0.16 MG,QD(0.16 MG,DAILY,PRIMING DOSE,SINGLE)
     Route: 058
     Dates: start: 20210308, end: 20210308
  50. DIHYDROCODEINE BITARTRATE [Suspect]
     Active Substance: DIHYDROCODEINE BITARTRATE
     Dosage: 1 DOSAGE FORM, QD, 8/JUN/2020 AND 18/MAY/2020,25/JUN/2020. THE PATIENT RECEIVED MOST RECENT DOSE OF
     Route: 065
  51. DIHYDROCODEINE BITARTRATE [Suspect]
     Active Substance: DIHYDROCODEINE BITARTRATE
     Indication: Visual impairment
     Dosage: 1 DOSAGE FORM, ONCE DAILY
     Route: 065
  52. DIHYDROCODEINE BITARTRATE [Suspect]
     Active Substance: DIHYDROCODEINE BITARTRATE
     Dosage: 1 DOSAGE FORM, QD
     Route: 065
  53. DIHYDROCODEINE BITARTRATE [Suspect]
     Active Substance: DIHYDROCODEINE BITARTRATE
     Dosage: 1 DOSAGE FORM, QD
     Route: 065
  54. DIHYDROCODEINE BITARTRATE [Suspect]
     Active Substance: DIHYDROCODEINE BITARTRATE
     Dosage: 1 DOSAGE FORM, QD
     Route: 065
  55. DIHYDROCODEINE BITARTRATE [Suspect]
     Active Substance: DIHYDROCODEINE BITARTRATE
     Dosage: 1 DOSAGE FORM, QD
     Route: 065
  56. DIHYDROCODEINE BITARTRATE [Suspect]
     Active Substance: DIHYDROCODEINE BITARTRATE
     Dosage: 8/JUN/2020 AND 18/MAY/2020,25/JUN/2020. THE PATIENT RECEIVED MOST RECENT DOSE OF ATEZOLIZUMAB (1200)
     Route: 065
  57. PACLITAXEL [Suspect]
     Active Substance: PACLITAXEL
     Indication: Transitional cell carcinoma
     Dosage: UNK, 8/JUN/2020 AND 18/MAY/2020,25/JUN/2020. THE PATIENT RECEIVED MOST RECENT DOSE OF ATEZOLIZUMAB (
     Route: 065
  58. PACLITAXEL [Suspect]
     Active Substance: PACLITAXEL
     Dosage: 378 MILLIGRAM, 8/JUN/2020 AND 18/MAY/2020,25/JUN/2020. THE PATIENT RECEIVED MOST RECENT DOSE OF ATEZ
     Route: 065
     Dates: start: 20200427
  59. PACLITAXEL [Suspect]
     Active Substance: PACLITAXEL
     Dosage: 750 MILLIGRAM, Q4WK, 8/JUN/2020 AND 18/MAY/2020,25/JUN/2020. THE PATIENT RECEIVED MOST RECENT DOSE O
     Route: 065
  60. PACLITAXEL [Suspect]
     Active Substance: PACLITAXEL
     Dosage: UNK
     Route: 065
  61. EPCORITAMAB [Suspect]
     Active Substance: EPCORITAMAB
     Indication: Follicular lymphoma
     Dosage: 16 MILLIGRAM, QWK, 8/JUN/2020 AND 18/MAY/2020,25/JUN/2020. THE PATIENT RECEIVED MOST RECENT DOSE OF
     Route: 058
     Dates: start: 20210308
  62. EPCORITAMAB [Suspect]
     Active Substance: EPCORITAMAB
     Dosage: 24 MILLIGRAM, EVERY 1 WEEK, FULL DOSE, CYCLE 1-3, 8/JUN/2020 AND 18/MAY/2020,25/JUN/2020. THE PATIEN
     Route: 058
     Dates: start: 20210322, end: 20210527
  63. EPCORITAMAB [Suspect]
     Active Substance: EPCORITAMAB
     Dosage: 24 MILLIGRAM, Q2WEEKS, FULL DOSE, CYCLE 4-9, 8/JUN/2020 AND 18/MAY/2020,25/JUN/2020. THE PATIENT REC
     Route: 058
     Dates: start: 20210607
  64. EPCORITAMAB [Suspect]
     Active Substance: EPCORITAMAB
     Dosage: 0.16 MILLIGRAM, QD (0.16 MILLIGRAM, DAILY, PRIMING DOSE, SINGLE), 8/JUN/2020 AND 18/MAY/2020,25/JUN/
     Route: 058
     Dates: start: 20210308, end: 20210308
  65. EPCORITAMAB [Suspect]
     Active Substance: EPCORITAMAB
     Dosage: 0.8 MILLIGRAM, DAILY, INTERMEDIATE DOSE, SINGLE, 8/JUN/2020 AND 18/MAY/2020,25/JUN/2020. THE PATIENT
     Route: 058
     Dates: start: 20210315, end: 20210315
  66. EPCORITAMAB [Suspect]
     Active Substance: EPCORITAMAB
     Dosage: CUMULATIVE DOSE: .96 MG, 8/JUN/2020 AND 18/MAY/2020,25/JUN/2020. THE PATIENT RECEIVED MOST RECENT DO
     Route: 065
  67. EPCORITAMAB [Suspect]
     Active Substance: EPCORITAMAB
     Dosage: 0.8 MILLIGRAM, QD, 8/JUN/2020 AND 18/MAY/2020,25/JUN/2020. THE PATIENT RECEIVED MOST RECENT DOSE OF
     Route: 065
     Dates: start: 20210315
  68. EPCORITAMAB [Suspect]
     Active Substance: EPCORITAMAB
     Dosage: 48MILLIGRAM, Q2WEEKS, FULL DOSE, CYCLE 4-9, 8/JUN/2020 AND 18/MAY/2020,25/JUN/2020. THE PATIENT RECE
     Route: 058
     Dates: start: 20210607
  69. EPCORITAMAB [Suspect]
     Active Substance: EPCORITAMAB
     Dosage: 0.8 MILLIGRAM, QD
     Route: 065
     Dates: start: 20210315
  70. EPCORITAMAB [Suspect]
     Active Substance: EPCORITAMAB
     Dosage: 24 MILLIGRAM, QWK, 8/JUN/2020 AND 18/MAY/2020,25/JUN/2020 THE PATIENT RECEIVED MOST RECENT DOSE OF A
     Route: 065
     Dates: start: 20210322
  71. EPCORITAMAB [Suspect]
     Active Substance: EPCORITAMAB
     Dosage: 48 MG
     Route: 065
     Dates: start: 20210607
  72. EPCORITAMAB [Suspect]
     Active Substance: EPCORITAMAB
     Dosage: 0.8 MILLIGRAM, QD
     Route: 058
  73. EPCORITAMAB [Suspect]
     Active Substance: EPCORITAMAB
     Dosage: 0.8 MILLIGRAM, QD
     Route: 058
  74. EPCORITAMAB [Suspect]
     Active Substance: EPCORITAMAB
     Dosage: 24 MILLIGRAM, BIWEEKLY
     Route: 065
     Dates: start: 20210607
  75. EPCORITAMAB [Suspect]
     Active Substance: EPCORITAMAB
     Dosage: 0.16 MILLIGRAM, QD
     Route: 065
     Dates: start: 20210308
  76. EPCORITAMAB [Suspect]
     Active Substance: EPCORITAMAB
     Dosage: 48 MILLIGRAM, QWK, 8/JUN/2020 AND 18/MAY/2020,25/JUN/2020 THE PATIENT RECEIVED MOST RECENT DOSE OF A
     Route: 058
     Dates: start: 20210607
  77. RITUXIMAB [Suspect]
     Active Substance: RITUXIMAB
     Indication: Follicular lymphoma
     Dosage: 750 MILLIGRAM, 4XW(DATE OF LAST DOSE PRIOR TO EVENT: 9/SEP/2021/ AND 21-SEP, ROA: IV DRIP)(CUMULATIV
     Route: 065
     Dates: start: 20210308
  78. RITUXIMAB [Suspect]
     Active Substance: RITUXIMAB
     Dosage: 750 MG 1Q4W (PHARMACEUTICAL DOSE FORM: 15)
     Route: 042
     Dates: start: 20210308
  79. RITUXIMAB [Suspect]
     Active Substance: RITUXIMAB
     Dosage: 750 MILLIGRAM, Q4WK
     Route: 042
     Dates: start: 20210705
  80. RITUXIMAB [Suspect]
     Active Substance: RITUXIMAB
     Dosage: UNK, DOSAGE FORM: 120
     Route: 065
  81. RITUXIMAB [Suspect]
     Active Substance: RITUXIMAB
     Dosage: 750 MILLIGRAM, 8/JUN/2020 AND 18/MAY/2020,25/JUN/2020. THE PATIENT RECEIVED MOST RECENT DOSE OF ATEZ
     Route: 040
     Dates: start: 20210705
  82. RITUXIMAB [Suspect]
     Active Substance: RITUXIMAB
     Dosage: 750 MILLIGRAM, 4XW(DATE OF LAST DOSE PRIOR TO EVENT: 9/SEP/2021/ AND 21-SEP, ROA: IV DRIP), 8/JUN/20
     Route: 065
     Dates: start: 20210308
  83. RITUXIMAB [Suspect]
     Active Substance: RITUXIMAB
     Dosage: 300 MILLIGRAM, QWK, DOSE FORM 16
     Route: 040
     Dates: start: 20210308
  84. RITUXIMAB [Suspect]
     Active Substance: RITUXIMAB
     Dosage: 300 MILLIGRAM, QWK, DOSAGE FORM: 16
     Route: 040
     Dates: start: 20210705
  85. RITUXIMAB [Suspect]
     Active Substance: RITUXIMAB
     Dosage: UNK
     Route: 065
  86. RITUXIMAB [Suspect]
     Active Substance: RITUXIMAB
     Dosage: UNK
     Route: 065
  87. RITUXIMAB [Suspect]
     Active Substance: RITUXIMAB
     Dosage: UNK
     Route: 065
  88. RITUXIMAB [Suspect]
     Active Substance: RITUXIMAB
     Dosage: 3000 MG, QW (750 MILLIGRAM, 4XW (DATE OF LAST DOSE PRIOR TO EVENT: 9/SEP/2021/ AND 21-SEP, ROA: IV D
     Route: 042
     Dates: start: 20210308
  89. RITUXIMAB [Suspect]
     Active Substance: RITUXIMAB
     Dosage: 750 MILLIGRAM, DATE OF LAST DOSE PRIOR TO EVENT: 750 MILLIGRAM, DATE OF LAST DOSE PRIOR TO EVENT: 75
     Route: 042
     Dates: start: 20210308
  90. RITUXIMAB [Suspect]
     Active Substance: RITUXIMAB
     Dosage: 3000 MG, QW (750 MILLIGRAM, 4XW (CUMULATIVE DOSE TO FIRST REACTION: 3000.0 MG)
     Route: 065
     Dates: start: 20210705
  91. RITUXIMAB [Suspect]
     Active Substance: RITUXIMAB
     Dosage: 750 MG, 8/JUN/2020 AND 18/MAY/2020,25/JUN/2020. THE PATIENT RECEIVED MOST RECENT DOSE OF ATEZOLIZUMA
     Route: 040
     Dates: start: 20210308
  92. RITUXIMAB [Suspect]
     Active Substance: RITUXIMAB
     Dosage: 8/JUN/2020 AND 18/MAY/2020,25/JUN/2020. THE PATIENT RECEIVED MOST RECENT DOSE OF ATEZOLIZUMAB (1200)
     Route: 065
  93. RITUXIMAB [Suspect]
     Active Substance: RITUXIMAB
     Dosage: 3000 MG, QW
     Route: 065
     Dates: start: 20210308
  94. RITUXIMAB [Suspect]
     Active Substance: RITUXIMAB
     Dosage: 3000 MG, QW
     Route: 042
     Dates: start: 20210705
  95. RITUXIMAB [Suspect]
     Active Substance: RITUXIMAB
     Dosage: 3000 MILLIGRAM, QWK, 8/JUN/2020 AND 18/MAY/2020,25/JUN/2020 THE PATIENT RECEIVED MOST RECENT DOSE OF
     Route: 040
     Dates: start: 20210308
  96. ACYCLOVIR [Concomitant]
     Active Substance: ACYCLOVIR
     Dosage: UNK, BID (0.33 DAY), 8/JUN/2020 AND 18/MAY/2020,25/JUN/2020. THE PATIENT RECEIVED MOST RECENT DOSE O
     Route: 065
     Dates: start: 20200402, end: 20200404
  97. ACYCLOVIR [Concomitant]
     Active Substance: ACYCLOVIR
     Dosage: UNK
     Route: 065
  98. ACYCLOVIR [Concomitant]
     Active Substance: ACYCLOVIR
     Dosage: UNK
     Route: 065
     Dates: start: 20200402, end: 20200404
  99. ACYCLOVIR [Concomitant]
     Active Substance: ACYCLOVIR
     Dosage: (0.33/DAY) 8/JUN/2020 AND 18/MAY/2020,25/JUN/2020 THE PATIENT RECEIVED MOST RECENT DOSE OF ATEZOLIZU
     Route: 065
     Dates: start: 20200402
  100. AMOXICILLIN TRIHYDRATE [Concomitant]
     Active Substance: AMOXICILLIN
     Dosage: UNK, BID (1 UNK, BID), 8/JUN/2020 AND 18/MAY/2020,25/JUN/2020. THE PATIENT RECEIVED MOST RECENT DOSE
     Route: 065
     Dates: start: 20200221
  101. AMOXICILLIN TRIHYDRATE [Concomitant]
     Active Substance: AMOXICILLIN
     Dosage: 8/JUN/2020 AND 18/MAY/2020,25/JUN/2020 THE PATIENT RECEIVED MOST RECENT DOSE OF ATEZOLIZUMAB (1200
     Route: 065
  102. BUTYLSCOPOLAMINE BROMIDE [Concomitant]
     Active Substance: BUTYLSCOPOLAMINE BROMIDE
     Dosage: UNK, 8/JUN/2020 AND 18/MAY/2020,25/JUN/2020. THE PATIENT RECEIVED MOST RECENT DOSE OF ATEZOLIZUMAB (
     Route: 065
  103. BUTYLSCOPOLAMINE BROMIDE [Concomitant]
     Active Substance: BUTYLSCOPOLAMINE BROMIDE
     Dosage: UNK
     Route: 065
     Dates: start: 20200214, end: 20200222
  104. CALCIUM [Concomitant]
     Active Substance: CALCIUM
     Dosage: UNK, 8/JUN/2020 AND 18/MAY/2020,25/JUN/2020. THE PATIENT RECEIVED MOST RECENT DOSE OF ATEZOLIZUMAB (
     Route: 065
     Dates: start: 20210504
  105. CALCIUM [Concomitant]
     Active Substance: CALCIUM
     Dosage: UNK
     Route: 065
  106. CEFUROXIME [Concomitant]
     Active Substance: CEFUROXIME
     Dosage: UNK, 8/JUN/2020 AND 18/MAY/2020,25/JUN/2020. THE PATIENT RECEIVED MOST RECENT DOSE OF ATEZOLIZUMAB (
     Route: 065
     Dates: start: 20210509
  107. CEFUROXIME [Concomitant]
     Active Substance: CEFUROXIME
     Dosage: UNK
     Route: 065
  108. CEFUROXIME [Concomitant]
     Active Substance: CEFUROXIME
     Dosage: UNK
     Route: 065
  109. CHLORHEXIDINE [Concomitant]
     Active Substance: CHLORHEXIDINE
     Indication: Hiatus hernia
     Dosage: UNK, 8/JUN/2020 AND 18/MAY/2020,25/JUN/2020. THE PATIENT RECEIVED MOST RECENT DOSE OF ATEZOLIZUMAB (
     Route: 065
  110. CLAVULANATE POTASSIUM [Concomitant]
     Active Substance: CLAVULANATE POTASSIUM
     Dosage: 8/JUN/2020 AND 18/MAY/2020,25/JUN/2020 THE PATIENT RECEIVED MOST RECENT DOSE OF ATEZOLIZUMAB (1200)
     Route: 065
  111. CLEMASTINE FUMARATE [Concomitant]
     Active Substance: CLEMASTINE FUMARATE
     Dosage: 8/JUN/2020 AND 18/MAY/2020,25/JUN/2020. THE PATIENT RECEIVED MOST RECENT DOSE OF ATEZOLIZUMAB (1200)
     Route: 065
     Dates: start: 20210509
  112. CLEMASTINE FUMARATE [Concomitant]
     Active Substance: CLEMASTINE FUMARATE
     Dosage: UNK
     Route: 065
  113. CHOLECALCIFEROL [Concomitant]
     Active Substance: CHOLECALCIFEROL
     Dosage: 8/JUN/2020 AND 18/MAY/2020,25/JUN/2020. THE PATIENT RECEIVED MOST RECENT DOSE OF ATEZOLIZUMAB (1200)
     Route: 065
     Dates: start: 20210504
  114. CHOLECALCIFEROL [Concomitant]
     Active Substance: CHOLECALCIFEROL
     Dosage: UNK
     Route: 065
  115. DAPSONE [Concomitant]
     Active Substance: DAPSONE
     Indication: Headache
     Dosage: UNK, UNK, QD, 8/JUN/2020 AND 18/MAY/2020,25/JUN/2020. THE PATIENT RECEIVED MOST RECENT DOSE OF ATEZO
     Route: 065
     Dates: start: 20200625
  116. DAPSONE [Concomitant]
     Active Substance: DAPSONE
     Dosage: UNK
     Route: 065
  117. DAPSONE [Concomitant]
     Active Substance: DAPSONE
     Dosage: 8/JUN/2020 AND 18/MAY/2020,25/JUN/2020 THE PATIENT RECEIVED MOST RECENT DOSE OF ATEZOLIZUMAB (1200
     Route: 065
  118. DEXAMETHASONE [Concomitant]
     Active Substance: DEXAMETHASONE
     Indication: Headache
     Dosage: UNK, UNK, QD, 8/JUN/2020 AND 18/MAY/2020,25/JUN/2020. THE PATIENT RECEIVED MOST RECENT DOSE OF ATEZO
     Route: 065
     Dates: start: 20200625
  119. FLUTICASONE FUROATE [Concomitant]
     Active Substance: FLUTICASONE FUROATE
     Dosage: UNK, 8/JUN/2020 AND 18/MAY/2020,25/JUN/2020. THE PATIENT RECEIVED MOST RECENT DOSE OF ATEZOLIZUMAB (
     Route: 065
     Dates: start: 20210708
  120. FLUTICASONE FUROATE [Concomitant]
     Active Substance: FLUTICASONE FUROATE
     Dosage: UNK
     Route: 065
  121. HYDROCORTISONE [Concomitant]
     Active Substance: HYDROCORTISONE
     Dosage: UNK, 8/JUN/2020 AND 18/MAY/2020,25/JUN/2020. THE PATIENT RECEIVED MOST RECENT DOSE OF ATEZOLIZUMAB (
     Route: 065
     Dates: start: 20210715
  122. HYDROCORTISONE [Concomitant]
     Active Substance: HYDROCORTISONE
     Dosage: UNK
     Route: 065
  123. Gelclair [Concomitant]
     Dosage: UNK, 8/JUN/2020 AND 18/MAY/2020,25/JUN/2020. THE PATIENT RECEIVED MOST RECENT DOSE OF ATEZOLIZUMAB (
     Route: 065
     Dates: start: 20200407, end: 20200409
  124. LOPERAMIDE [Concomitant]
     Active Substance: LOPERAMIDE
     Indication: Pain
     Dosage: 8/JUN/2020 AND 18/MAY/2020,25/JUN/2020 THEPATIENTRECEIVED MOST RECENT DOSE OF ATEZOLIZUMAB (1200)
     Route: 065
     Dates: start: 20210518
  125. LOPERAMIDE [Concomitant]
     Active Substance: LOPERAMIDE
     Dosage: UNK, 8/JUN/2020 AND 18/MAY/2020,25/JUN/2020. THE PATIENT RECEIVED MOST RECENT DOSE OF ATEZOLIZUMAB (
     Route: 065
     Dates: start: 20120823
  126. LOPERAMIDE [Concomitant]
     Active Substance: LOPERAMIDE
     Dosage: UNK, 8/JUN/2020 AND 18/MAY/2020,25/JUN/2020. THE PATIENT RECEIVED MOST RECENT DOSE OF ATEZOLIZUMAB (
     Route: 065
     Dates: start: 20200214
  127. LANSOPRAZOLE [Concomitant]
     Active Substance: LANSOPRAZOLE
     Dosage: UNK
     Route: 065
     Dates: start: 20210518
  128. LANSOPRAZOLE [Concomitant]
     Active Substance: LANSOPRAZOLE
     Dosage: UNK, 8/JUN/2020 AND 18/MAY/2020,25/JUN/2020. THE PATIENT RECEIVED MOST RECENT DOSE OF ATEZOLIZUMAB (
     Route: 065
  129. METOCLOPRAMIDE [Concomitant]
     Active Substance: METOCLOPRAMIDE
     Indication: Pain
     Dosage: 8/JUN/2020 AND 18/MAY/2020,25/JUN/2020 THE PATIENT RECEIVED MOST RECENT DOSE OF ATEZOLIZUMAB (1200
     Route: 065
     Dates: start: 20200214, end: 20200220
  130. METOCLOPRAMIDE [Concomitant]
     Active Substance: METOCLOPRAMIDE
     Dosage: 0.33/DAY
     Route: 065
     Dates: start: 20200214, end: 20200222
  131. METOCLOPRAMIDE [Concomitant]
     Active Substance: METOCLOPRAMIDE
     Dosage: UNK, 8/JUN/2020 AND 18/MAY/2020,25/JUN/2020. THE PATIENT RECEIVED MOST RECENT DOSE OF ATEZOLIZUMAB (
     Route: 065
     Dates: start: 20210509
  132. METOCLOPRAMIDE [Concomitant]
     Active Substance: METOCLOPRAMIDE
     Dosage: UNK UNK, TID
     Route: 065
     Dates: start: 20220214, end: 20220220
  133. METOCLOPRAMIDE [Concomitant]
     Active Substance: METOCLOPRAMIDE
     Dosage: UNK
     Route: 065
     Dates: start: 20210509
  134. MICONAZOLE NITRATE [Concomitant]
     Active Substance: MICONAZOLE NITRATE
     Dosage: 8/JUN/2020 AND 18/MAY/2020,25/JUN/2020. THE PATIENT RECEIVED MOST RECENT DOSE OF ATEZOLIZUMAB (1200)
     Route: 065
     Dates: start: 20210715
  135. MICONAZOLE NITRATE [Concomitant]
     Active Substance: MICONAZOLE NITRATE
     Dosage: UNK
     Route: 065
  136. MORPHINE SULFATE [Concomitant]
     Active Substance: MORPHINE SULFATE
     Indication: Pain
     Dosage: UNK, DOSAGE FORM: 212, 8/JUN/2020 AND 18/MAY/2020,25/JUN/2020. THE PATIENT RECEIVED MOST RECENT DOSE
     Route: 065
  137. MORPHINE SULFATE [Concomitant]
     Active Substance: MORPHINE SULFATE
     Dosage: UNK
     Route: 065
  138. NITROFURANTOIN [Concomitant]
     Active Substance: NITROFURANTOIN
     Indication: Hiatus hernia
     Dosage: UNK, QD, 8/JUN/2020 AND 18/MAY/2020,25/JUN/2020. THE PATIENT RECEIVED MOST RECENT DOSE OF ATEZOLIZUM
     Route: 065
     Dates: start: 20200204
  139. OMEPRAZOLE [Concomitant]
     Active Substance: OMEPRAZOLE
     Dosage: UNK, 8/JUN/2020 AND 18/MAY/2020,25/JUN/2020. THE PATIENT RECEIVED MOST RECENT DOSE OF ATEZOLIZUMAB (
     Route: 065
  140. ONDANSETRON [Concomitant]
     Active Substance: ONDANSETRON
     Dosage: UNK, 8/JUN/2020 AND 18/MAY/2020,25/JUN/2020 THE PATIENT RECEIVED MOST RECENT DOSE OF ATEZOLIZUMAB (1
     Route: 065
     Dates: start: 20210509
  141. ONDANSETRON [Concomitant]
     Active Substance: ONDANSETRON
     Dosage: 8 MILLIGRAM, 8/JUN/2020 AND 18/MAY/2020,25/JUN/2020. THE PATIENT RECEIVED MOST RECENT DOSE OF ATEZOL
     Route: 065
     Dates: start: 20220210
  142. ONDANSETRON [Concomitant]
     Active Substance: ONDANSETRON
     Dosage: UNK
     Route: 065
     Dates: start: 20210509
  143. ONDANSETRON [Concomitant]
     Active Substance: ONDANSETRON
     Dosage: UNK
     Route: 065
  144. OXETACAINE [Concomitant]
     Active Substance: OXETHAZAINE
     Indication: Mucosal inflammation
     Dosage: UNK, 8/JUN/2020 AND 18/MAY/2020,25/JUN/2020. THE PATIENT RECEIVED MOST RECENT DOSE OF ATEZOLIZUMAB (
     Route: 065
     Dates: start: 20200221
  145. ACETAMINOPHEN [Concomitant]
     Active Substance: ACETAMINOPHEN
     Indication: Pain
     Dosage: UNK, 8/JUN/2020 AND 18/MAY/2020,25/JUN/2020. THE PATIENT RECEIVED MOST RECENT DOSE OF ATEZOLIZUMAB (
     Route: 065
     Dates: start: 20210308
  146. ACETAMINOPHEN [Concomitant]
     Active Substance: ACETAMINOPHEN
     Dosage: UNK (DOSE 1, 1 AS NECESSARY)
     Route: 065
  147. ACETAMINOPHEN [Concomitant]
     Active Substance: ACETAMINOPHEN
     Dosage: UNK
     Route: 065
  148. ACETAMINOPHEN [Concomitant]
     Active Substance: ACETAMINOPHEN
     Dosage: UNK
     Route: 065
  149. ACETAMINOPHEN [Concomitant]
     Active Substance: ACETAMINOPHEN
     Dosage: UNK, AS NECESSARY, 8/JUN/2020 AND 18/MAY/2020,25/JUN/2020 THE PATIENT RECEIVED MOST RECENT DOSE OF A
     Route: 065
  150. AMDINOCILLIN PIVOXIL [Concomitant]
     Active Substance: AMDINOCILLIN PIVOXIL
     Dosage: UNK, 8/JUN/2020 AND 18/MAY/2020,25/JUN/2020. THE PATIENT RECEIVED MOST RECENT DOSE OF ATEZOLIZUMAB (
     Route: 065
  151. AMDINOCILLIN PIVOXIL [Concomitant]
     Active Substance: AMDINOCILLIN PIVOXIL
     Dosage: UNK
     Route: 065
  152. AMDINOCILLIN PIVOXIL [Concomitant]
     Active Substance: AMDINOCILLIN PIVOXIL
     Dosage: UNK
     Route: 065
  153. AMDINOCILLIN PIVOXIL [Concomitant]
     Active Substance: AMDINOCILLIN PIVOXIL
     Dosage: UNK
     Route: 065
  154. AMDINOCILLIN PIVOXIL [Concomitant]
     Active Substance: AMDINOCILLIN PIVOXIL
     Dosage: UNK
     Route: 065
  155. AMDINOCILLIN PIVOXIL [Concomitant]
     Active Substance: AMDINOCILLIN PIVOXIL
     Dosage: UNK
     Route: 065
  156. AMDINOCILLIN PIVOXIL [Concomitant]
     Active Substance: AMDINOCILLIN PIVOXIL
     Dosage: UNK
     Route: 065
  157. AMDINOCILLIN PIVOXIL [Concomitant]
     Active Substance: AMDINOCILLIN PIVOXIL
     Dosage: UNK
     Route: 065
  158. AMDINOCILLIN PIVOXIL [Concomitant]
     Active Substance: AMDINOCILLIN PIVOXIL
     Dosage: UNK
     Route: 065
  159. POTASSIUM CHLORIDE [Concomitant]
     Active Substance: POTASSIUM CHLORIDE
     Dosage: UNK, 8/JUN/2020 AND 18/MAY/2020,25/JUN/2020. THE PATIENT RECEIVED MOST RECENT DOSE OF ATEZOLIZUMAB (
     Route: 065
     Dates: start: 20210308
  160. POTASSIUM CHLORIDE [Concomitant]
     Active Substance: POTASSIUM CHLORIDE
     Dosage: UNK
     Route: 065
  161. POTASSIUM CHLORIDE [Concomitant]
     Active Substance: POTASSIUM CHLORIDE
     Dosage: UNK
     Route: 065
     Dates: start: 20210308
  162. PRAMIPEXOLE [Concomitant]
     Active Substance: PRAMIPEXOLE
     Indication: Pain
     Dosage: UNK, 8/JUN/2020 AND 18/MAY/2020,25/JUN/2020. THE PATIENT RECEIVED MOST RECENT DOSE OF ATEZOLIZUMAB (
     Route: 065
     Dates: start: 20120823
  163. PRAMIPEXOLE [Concomitant]
     Active Substance: PRAMIPEXOLE
     Dosage: 8/JUN/2020 AND 18/MAY/2020,25/JUN/2020 THE PATIENT RECEIVED MOST RECENT DOSE OF ATEZOLIZUMAB (1200
     Route: 065
  164. PREDNISOLONE [Concomitant]
     Active Substance: PREDNISOLONE
     Indication: Oedema peripheral
     Dosage: UNK
     Route: 065
     Dates: start: 20210705, end: 20210705
  165. ALBUTEROL [Concomitant]
     Active Substance: ALBUTEROL
     Dosage: UNK, 8/JUN/2020 AND 18/MAY/2020,25/JUN/2020. THE PATIENT RECEIVED MOST RECENT DOSE OF ATEZOLIZUMAB (
     Route: 065
     Dates: start: 20210708
  166. ALBUTEROL [Concomitant]
     Active Substance: ALBUTEROL
     Dosage: UNK
     Route: 065
  167. PRAMIPEXOLE DIHYDROCHLORIDE [Concomitant]
     Active Substance: PRAMIPEXOLE DIHYDROCHLORIDE
     Dosage: UNK
     Route: 065
  168. PRAMIPEXOLE DIHYDROCHLORIDE [Concomitant]
     Active Substance: PRAMIPEXOLE DIHYDROCHLORIDE
     Dosage: UNK, 8/JUN/2020 AND 18/MAY/2020,25/JUN/2020. THE PATIENT RECEIVED MOST RECENT DOSE OF ATEZOLIZUMAB (
     Route: 065
     Dates: start: 20120823
  169. VALGANCICLOVIR [Concomitant]
     Active Substance: VALGANCICLOVIR
     Dosage: UNK, 8/JUN/2020 AND 18/MAY/2020,25/JUN/2020. THE PATIENT RECEIVED MOST RECENT DOSE OF ATEZOLIZUMAB (
     Route: 065
  170. VILANTEROL TRIFENATATE [Concomitant]
     Active Substance: VILANTEROL TRIFENATATE
     Dosage: UNK, 8/JUN/2020 AND 18/MAY/2020,25/JUN/2020. THE PATIENT RECEIVED MOST RECENT DOSE OF ATEZOLIZUMAB (
     Route: 065
     Dates: start: 20210708
  171. VILANTEROL TRIFENATATE [Concomitant]
     Active Substance: VILANTEROL TRIFENATATE
     Dosage: UNK
     Route: 065
  172. BUTYLSCOPOLAMINE BROMIDE [Concomitant]
     Active Substance: BUTYLSCOPOLAMINE BROMIDE
     Indication: Pain
     Dosage: UNK
     Route: 065
  173. BUTYLSCOPOLAMINE BROMIDE [Concomitant]
     Active Substance: BUTYLSCOPOLAMINE BROMIDE
     Dosage: 0.5 ABSENT, 8/JUN/2020 AND 18/MAY/2020,25/JUN/2020. THE PATIENT RECEIVED MOST RECENT DOSE OF ATEZOLI
     Route: 065
     Dates: start: 20200214, end: 20200222
  174. AMOXICILLIN\CLAVULANATE POTASSIUM [Concomitant]
     Active Substance: AMOXICILLIN\CLAVULANATE POTASSIUM
     Dosage: UNK
     Route: 065
  175. AMOXICILLIN\CLAVULANATE POTASSIUM [Concomitant]
     Active Substance: AMOXICILLIN\CLAVULANATE POTASSIUM
     Dosage: 8/JUN/2020 AND 18/MAY/2020,25/JUN/2020 THE PATIENT RECEIVED MOST RECENT DOSE OF ATEZOLIZUMAB (1200
     Route: 065
  176. IMODIUM [Concomitant]
     Active Substance: LOPERAMIDE HYDROCHLORIDE
     Dosage: UNK, 8/JUN/2020 AND 18/MAY/2020,25/JUN/2020. THE PATIENT RECEIVED MOST RECENT DOSE OF ATEZOLIZUMAB (
     Route: 065
     Dates: start: 20210518
  177. MORPHINE SULFATE [Concomitant]
     Active Substance: MORPHINE SULFATE
     Indication: Pain
     Dosage: UNK, 8/JUN/2020 AND 18/MAY/2020,25/JUN/2020. THE PATIENT RECEIVED MOST RECENT DOSE OF ATEZOLIZUMAB (
     Route: 065
  178. PRAMIPEXOLE [Concomitant]
     Active Substance: PRAMIPEXOLE
     Dosage: UNK
     Route: 065
  179. PRAMIPEXOLE [Concomitant]
     Active Substance: PRAMIPEXOLE
     Dosage: UNK, 8/JUN/2020 AND 18/MAY/2020,25/JUN/2020 THE PATIENT RECEIVED MOST RECENT DOSE OF ATEZOLIZUMAB (1
     Route: 065
     Dates: start: 20120823
  180. AMOXICILLIN [Concomitant]
     Active Substance: AMOXICILLIN
     Dosage: 8/JUN/2020 AND 18/MAY/2020,25/JUN/2020 THE PATIENT RECEIVED MOST RECENT DOSE OF ATEZOLIZUMAB (1200)
     Route: 065
  181. CLAVULANIC ACID [Concomitant]
     Active Substance: CLAVULANIC ACID
     Dosage: 8/JUN/2020 AND 18/MAY/2020,25/JUN/2020 THEPATIENTRECEIVED MOST RECENT DOSE OF ATEZOLIZUMAB (1200)
     Route: 065
     Dates: start: 20210714, end: 20210715
  182. FUROSEMIDE [Concomitant]
     Active Substance: FUROSEMIDE
     Dosage: 8/JUN/2020 AND 18/MAY/2020,25/JUN/2020 THEPATIENTRECEIVED MOST RECENT DOSE OF ATEZOLIZUMAB (1200)
     Route: 065
  183. METHYLPREDNISOLONE SODIUM SUCCINATE [Concomitant]
     Active Substance: METHYLPREDNISOLONE SODIUM SUCCINATE
     Dosage: 8/JUN/2020 AND 18/MAY/2020,25/JUN/2020 THEPATIENTRECEIVED MOST RECENT DOSE OF ATEZOLIZUMAB (1200)
     Route: 065
     Dates: start: 20210509
  184. METOCLOPRAMIDE HYDROCHLORIDE [Concomitant]
     Active Substance: METOCLOPRAMIDE HYDROCHLORIDE
     Dosage: 8/JUN/2020 AND 18/MAY/2020,25/JUN/2020 THEPATIENTRECEIVED MOST RECENT DOSE OF ATEZOLIZUMAB (1200)
     Route: 065
     Dates: start: 20210715
  185. MORPHINE SULFATE [Concomitant]
     Active Substance: MORPHINE SULFATE
     Dosage: 8/JUN/2020 AND 18/MAY/2020,25/JUN/2020 THEPATIENTRECEIVED MOST RECENT DOSE OF ATEZOLIZUMAB (1200)
     Route: 065
  186. MICONAZOLE [Concomitant]
     Active Substance: MICONAZOLE
     Dosage: 8/JUN/2020 AND 18/MAY/2020,25/JUN/2020 THEPATIENTRECEIVED MOST RECENT DOSE OF ATEZOLIZUMAB (1200)
     Route: 065
  187. PIPERACILLIN SODIUM [Concomitant]
     Active Substance: PIPERACILLIN SODIUM
     Dosage: 8/JUN/2020 AND 18/MAY/2020,25/JUN/2020 THEPATIENTRECEIVED MOST RECENT DOSE OF ATEZOLIZUMAB (1200)
     Route: 065
  188. PREDNISOLONE [Concomitant]
     Active Substance: PREDNISOLONE
     Dosage: 8/JUN/2020 AND 18/MAY/2020,25/JUN/2020 THEPATIENTRECEIVED MOST RECENT DOSE OF ATEZOLIZUMAB (1200)
     Route: 065
  189. SODIUM BICARBONATE [Concomitant]
     Active Substance: SODIUM BICARBONATE
     Dosage: 8/JUN/2020 AND 18/MAY/2020,25/JUN/2020 THEPATIENTRECEIVED MOST RECENT DOSE OF ATEZOLIZUMAB (1200)
     Route: 065
  190. TAZOBACTAM SODIUM [Concomitant]
     Active Substance: TAZOBACTAM SODIUM
     Indication: Prophylaxis
     Dosage: 8/JUN/2020 AND 18/MAY/2020,25/JUN/2020 THEPATIENTRECEIVED MOST RECENT DOSE OF ATEZOLIZUMAB (1200)
     Route: 065
     Dates: start: 20210308
  191. VITAMIN D3 [Concomitant]
     Active Substance: CHOLECALCIFEROL
     Dosage: 8/JUN/2020 AND 18/MAY/2020,25/JUN/2020 THEPATIENTRECEIVED MOST RECENT DOSE OF ATEZOLIZUMAB (1200)
     Route: 065
     Dates: start: 20210504
  192. METHYLPREDNISOLONE [Concomitant]
     Active Substance: METHYLPREDNISOLONE
     Dosage: 8/JUN/2020 AND 18/MAY/2020,25/JUN/2020 THEPATIENTRECEIVED MOST RECENT DOSE OF ATEZOLIZUMAB (1200)
     Route: 065
     Dates: start: 20210308, end: 20210406

REACTIONS (20)
  - Product use issue [Unknown]
  - Off label use [Unknown]
  - Off label use [Unknown]
  - Hydronephrosis [Unknown]
  - Abdominal pain [Recovered/Resolved]
  - Abdominal pain [Recovered/Resolved]
  - Abdominal pain [Recovered/Resolved]
  - Abdominal pain [Recovered/Resolved]
  - Abdominal pain [Not Recovered/Not Resolved]
  - Abdominal pain [Recovered/Resolved]
  - Abdominal pain [Recovered/Resolved]
  - Constipation [Unknown]
  - Constipation [Recovered/Resolved]
  - Constipation [Unknown]
  - Constipation [Unknown]
  - Constipation [Recovered/Resolved]
  - Constipation [Recovered/Resolved]
  - Blood creatinine increased [Unknown]
  - Sepsis [Unknown]
  - Cytomegalovirus infection [Recovered/Resolved]

NARRATIVE: CASE EVENT DATE: 20200212
